FAERS Safety Report 8353483-9 (Version None)
Quarter: 2012Q2

REPORT INFORMATION
  Report Type: 
  Country: None (occurrence: None)
  Receive Date: 20120511
  Receipt Date: 20110408
  Transmission Date: 20120825
  Serious: No
  Sender: FDA-Public Use
  Company Number: US-GLAXOSMITHKLINE-A0923088A

PATIENT
  Age: 63 Year
  Sex: Female
  Weight: 65.5 kg

DRUGS (5)
  1. MOEXIPRIL HYDROCHLORIDE [Concomitant]
  2. TYKERB [Suspect]
     Indication: PRODUCT USED FOR UNKNOWN INDICATION
     Dosage: 1250MG PER DAY
     Route: 048
  3. LORAZEPAM [Concomitant]
  4. PROCHLORPERAZINE [Concomitant]
  5. HERCEPTIN [Concomitant]

REACTIONS (1)
  - DIARRHOEA [None]
